FAERS Safety Report 9018397 (Version 1)
Quarter: 2013Q1

REPORT INFORMATION
  Report Type: Spontaneous
  Country: US (occurrence: US)
  Receive Date: 20130118
  Receipt Date: 20130118
  Transmission Date: 20140127
  Serious: No
  Sender: FDA-Public Use
  Company Number: US-PFIZER INC-2013022679

PATIENT
  Age: 36 Year
  Sex: Female
  Weight: 66.21 kg

DRUGS (5)
  1. LYRICA [Suspect]
     Indication: MULTIPLE SCLEROSIS
     Dosage: 150 MG, 3X/DAY
     Route: 048
     Dates: start: 2008, end: 20130114
  2. AMANTADINE [Concomitant]
     Indication: MULTIPLE SCLEROSIS
     Dosage: 100 MG, DAILY
  3. CYMBALTA [Concomitant]
     Indication: MULTIPLE SCLEROSIS
     Dosage: 90 MG, DAILY
  4. CLONAZEPAM [Concomitant]
     Indication: MULTIPLE SCLEROSIS
     Dosage: 1 MG, DAILY
  5. VITAMIN D [Concomitant]
     Indication: MULTIPLE SCLEROSIS
     Dosage: 50000 IU, WEEKLY

REACTIONS (3)
  - Withdrawal syndrome [Not Recovered/Not Resolved]
  - Cough [Not Recovered/Not Resolved]
  - Malaise [Not Recovered/Not Resolved]
